FAERS Safety Report 18219169 (Version 4)
Quarter: 2021Q3

REPORT INFORMATION
  Report Type: Spontaneous
  Country: US (occurrence: US)
  Receive Date: 20200901
  Receipt Date: 20210722
  Transmission Date: 20211014
  Serious: Yes (Other)
  Sender: FDA-Public Use
  Company Number: US-PFIZER INC-2020337320

PATIENT
  Age: 61 Year
  Sex: Female
  Weight: 56.24 kg

DRUGS (7)
  1. ELIQUIS [Concomitant]
     Active Substance: APIXABAN
     Indication: THROMBOSIS
     Dosage: 5 MG, 2X/DAY
     Dates: start: 2020
  2. SCOPOLAMINE AMINOXIDE [Concomitant]
     Active Substance: SCOPOLAMINE N-OXIDE
     Indication: VOMITING
  3. IBRANCE [Suspect]
     Active Substance: PALBOCICLIB
     Dosage: 75 MG, CYCLIC (ONE TABLET DAILY FOR 18 DAYS AND THEN OFF FOR 13 DAYS)
     Route: 048
  4. FASLODEX [Concomitant]
     Active Substance: FULVESTRANT
     Indication: BREAST CANCER METASTATIC
     Dosage: UNK, MONTHLY
     Dates: start: 2020
  5. SCOPOLAMINE AMINOXIDE [Concomitant]
     Active Substance: SCOPOLAMINE N-OXIDE
     Indication: NAUSEA
     Dosage: 1 MG PATCH APPLIED EVERY 3 DAYS
  6. IBRANCE [Suspect]
     Active Substance: PALBOCICLIB
     Indication: BREAST CANCER METASTATIC
     Dosage: 125 MG, CYCLIC (DAYS 1?21 OF 28)
     Route: 048
     Dates: start: 20200708, end: 2020
  7. XGEVA [Concomitant]
     Active Substance: DENOSUMAB
     Indication: BREAST CANCER METASTATIC
     Dosage: UNK UNK, MONTHLY
     Dates: start: 2020

REACTIONS (2)
  - Off label use [Unknown]
  - White blood cell count decreased [Recovering/Resolving]

NARRATIVE: CASE EVENT DATE: 2020
